FAERS Safety Report 7096457-0 (Version None)
Quarter: 2010Q4

REPORT INFORMATION
  Report Type: 
  Country: None (occurrence: None)
  Receive Date: 20101111
  Receipt Date: 20101029
  Transmission Date: 20110411
  Serious: Yes (Hospitalization)
  Sender: FDA-Public Use
  Company Number: JP-JNJFOC-20101006182

PATIENT
  Age: 50 Year
  Sex: Male

DRUGS (3)
  1. RISPERDAL [Suspect]
     Indication: ILL-DEFINED DISORDER
     Route: 048
  2. RISPERDAL [Suspect]
     Indication: SCHIZOPHRENIA
     Route: 048
  3. LAMISIL [Suspect]
     Indication: ONYCHOMYCOSIS
     Route: 048

REACTIONS (4)
  - BRADYCARDIA [None]
  - DYSPNOEA [None]
  - HOSPITALISATION [None]
  - RESPIRATORY DISORDER [None]
